FAERS Safety Report 7412613-3 (Version None)
Quarter: 2011Q2

REPORT INFORMATION
  Report Type: 
  Country: None (occurrence: None)
  Receive Date: 20110413
  Receipt Date: 20110406
  Transmission Date: 20111010
  Serious: Yes (Other)
  Sender: FDA-Public Use
  Company Number: B0657421A

PATIENT
  Sex: Female

DRUGS (2)
  1. NICOTINE [Suspect]
     Indication: SMOKING CESSATION THERAPY
     Dosage: 37.5MG CUMULATIVE DOSE
     Route: 062
     Dates: start: 20100418, end: 20100420
  2. NICOTINE [Concomitant]
     Route: 055
     Dates: start: 20100310

REACTIONS (3)
  - ERYTHEMA [None]
  - PRURITUS [None]
  - PRODUCT SUBSTITUTION ISSUE [None]
